FAERS Safety Report 9448149 (Version 2)
Quarter: 2013Q3

REPORT INFORMATION
  Report Type: Spontaneous
  Country: US (occurrence: US)
  Receive Date: 20130808
  Receipt Date: 20130903
  Transmission Date: 20140515
  Serious: Yes (Death, Hospitalization)
  Sender: FDA-Public Use
  Company Number: US-SANOFI-AVENTIS-2013SA079475

PATIENT
  Age: 77 Year
  Sex: Male
  Weight: 89.35 kg

DRUGS (25)
  1. ZALTRAP [Suspect]
     Indication: COLON CANCER METASTATIC
     Route: 042
     Dates: start: 20130722, end: 20130722
  2. LEUCOVORIN [Suspect]
     Indication: COLORECTAL CANCER
     Route: 065
     Dates: start: 20130722, end: 20130722
  3. IRINOTECAN HYDROCHLORIDE [Suspect]
     Indication: COLORECTAL CANCER
     Route: 065
     Dates: start: 20130722, end: 20130722
  4. 5-FU [Suspect]
     Indication: COLORECTAL CANCER
     Route: 065
     Dates: start: 20130722, end: 20130722
  5. DEXAMETHASONE [Concomitant]
     Route: 065
     Dates: start: 20130722, end: 20130722
  6. ZOFRAN [Concomitant]
     Route: 065
     Dates: start: 20130722, end: 20130722
  7. ATROPINE [Concomitant]
     Route: 065
     Dates: start: 20130722, end: 20130722
  8. VITAMIN B12 [Concomitant]
     Route: 065
     Dates: start: 20130722, end: 20130722
  9. ATENOLOL [Concomitant]
     Route: 048
  10. ATENOLOL [Concomitant]
     Route: 048
  11. DABIGATRAN [Concomitant]
     Route: 048
  12. DIGOXIN [Concomitant]
     Route: 048
  13. LOMOTIL [Concomitant]
     Dosage: 2.5-0.025 MG?1 TABLET BY MOUTH 4 TIMES DAILY AS NEEDED
     Route: 048
  14. LOPERAMIDE [Concomitant]
     Dosage: 4 TIMES DAILY AS NEEDED
     Route: 048
  15. TORADOL [Concomitant]
     Dosage: 15 MG/ML INJECTION 15 MG
     Route: 065
  16. MAGNESIUM OXIDE [Concomitant]
     Route: 048
  17. MORPHINE [Concomitant]
     Dosage: 20 MG/ML LIQUID
     Route: 065
  18. DILAUDID [Concomitant]
     Route: 065
  19. DULCOLAX [Concomitant]
     Dosage: SUPPOSITORY
     Route: 065
  20. PROVENTIL [Concomitant]
     Dosage: 2.5 MG/3 ML INHALATION 2.5 MG
     Route: 055
  21. SIMVASTATIN [Concomitant]
     Route: 048
  22. ATROPINE [Concomitant]
     Dosage: OPTHALMIC SOLUTION 2 DROP
     Route: 065
  23. COLACE [Concomitant]
     Route: 065
  24. HALDOL [Concomitant]
     Dosage: 5 MG/DL INJECTION 2 MG
     Route: 065
  25. HEPARIN [Concomitant]
     Dosage: 10 UNITS/ML FLUSH SYRINGE DOSE:30 UNIT(S)
     Route: 065

REACTIONS (13)
  - Intestinal ischaemia [Fatal]
  - Abdominal pain [Fatal]
  - Thrombosis [Fatal]
  - Convulsion [Fatal]
  - Loss of consciousness [Fatal]
  - Dyskinesia [Fatal]
  - Hypertension [Fatal]
  - Malaise [Fatal]
  - Respiratory failure [Fatal]
  - Dyspnoea [Fatal]
  - Diarrhoea [Fatal]
  - Nausea [Fatal]
  - Vomiting [Fatal]
